FAERS Safety Report 8612363-1 (Version None)
Quarter: 2012Q3

REPORT INFORMATION
  Report Type: 
  Country: None (occurrence: None)
  Receive Date: 20120822
  Receipt Date: 20120809
  Transmission Date: 20120928
  Serious: Yes (Life-Threatening, Hospitalization, Congenital Anomaly)
  Sender: FDA-Public Use
  Company Number: DE-FRI-1000037891

PATIENT
  Sex: Male
  Weight: 2.4 kg

DRUGS (5)
  1. RAMIPRIL [Suspect]
     Dosage: 2.5 MG
     Route: 064
  2. LEVOTHYROXINE SODIUM [Concomitant]
     Dosage: 50 MCG
     Route: 064
  3. FOLIC ACID [Concomitant]
     Indication: PROPHYLAXIS OF NEURAL TUBE DEFECT
     Dosage: 0.4 MG
     Route: 064
  4. NEBIVOLOL [Suspect]
     Dosage: 5 MG
     Route: 064
  5. RAMIPRIL [Suspect]
     Dosage: 5 MG
     Route: 064

REACTIONS (7)
  - SMALL FOR DATES BABY [None]
  - RENAL APLASIA [None]
  - EXTREMITY CONTRACTURE [None]
  - RENAL FAILURE ACUTE [None]
  - FOETAL EXPOSURE DURING PREGNANCY [None]
  - CRANIAL SUTURES WIDENING [None]
  - NEONATAL ANURIA [None]
